FAERS Safety Report 7163791-5 (Version None)
Quarter: 2010Q4

REPORT INFORMATION
  Report Type: 
  Country: None (occurrence: None)
  Receive Date: 20101215
  Receipt Date: 20100612
  Transmission Date: 20110411
  Serious: Yes (Hospitalization, Other)
  Sender: FDA-Public Use
  Company Number: US-PFIZER INC-2010001011

PATIENT
  Sex: Female
  Weight: 72.6 kg

DRUGS (9)
  1. LYRICA [Suspect]
     Indication: MUSCLE SPASMS
     Dosage: UNK
     Route: 048
     Dates: start: 20060101, end: 20061204
  2. LYRICA [Suspect]
     Indication: FIBROMYALGIA
  3. LYRICA [Suspect]
     Indication: PAIN
  4. LYRICA [Suspect]
  5. LYRICA [Suspect]
     Indication: MYALGIA
  6. LYRICA [Suspect]
     Indication: ARTHRALGIA
  7. OXYCODONE [Concomitant]
     Indication: PAIN
     Dosage: UNK
  8. ZANAFLEX [Concomitant]
     Dosage: UNK
  9. SOMA [Concomitant]
     Dosage: UNK

REACTIONS (16)
  - ABDOMINAL ADHESIONS [None]
  - BODY HEIGHT DECREASED [None]
  - C-REACTIVE PROTEIN INCREASED [None]
  - CONFUSIONAL STATE [None]
  - CONVULSION [None]
  - FEELING ABNORMAL [None]
  - FIBRIN D DIMER INCREASED [None]
  - HEADACHE [None]
  - INFLAMMATION [None]
  - MENTAL STATUS CHANGES [None]
  - OEDEMA PERIPHERAL [None]
  - OVARIAN REMNANT SYNDROME [None]
  - POSTICTAL STATE [None]
  - RED BLOOD CELL SEDIMENTATION RATE INCREASED [None]
  - WEIGHT DECREASED [None]
  - WEIGHT INCREASED [None]
